FAERS Safety Report 5752700-9 (Version None)
Quarter: 2008Q2

REPORT INFORMATION
  Report Type: 
  Country: None (occurrence: None)
  Receive Date: 20080527
  Receipt Date: 20080527
  Transmission Date: 20081010
  Serious: Yes (Hospitalization)
  Sender: FDA-Public Use
  Company Number: None

PATIENT
  Age: 66 Year
  Sex: Male
  Weight: 108.5 kg

DRUGS (2)
  1. BORTEZOMIB  1.0 MG/M2 [Suspect]
     Indication: MULTIPLE MYELOMA
     Dosage: 2.3 MG ONCE EVERY 2 WEEKS IV
     Route: 042
     Dates: start: 20080521, end: 20080521
  2. CNTO328   6MG/KG  CENTOCOR [Suspect]
     Indication: MULTIPLE MYELOMA
     Dosage: 649.2 MG ONCE EVERY 2 WEEKS IV
     Route: 042
     Dates: start: 20080521, end: 20080521

REACTIONS (5)
  - CHRONIC OBSTRUCTIVE PULMONARY DISEASE [None]
  - CONDITION AGGRAVATED [None]
  - DYSPNOEA [None]
  - PLATELET COUNT DECREASED [None]
  - PNEUMONIA [None]
